FAERS Safety Report 10077091 (Version 1)
Quarter: 2014Q2

REPORT INFORMATION
  Report Type: Spontaneous
  Country: DE (occurrence: DE)
  Receive Date: 20140414
  Receipt Date: 20140414
  Transmission Date: 20141212
  Serious: Yes (Other)
  Sender: FDA-Public Use
  Company Number: PHHY2014DE043956

PATIENT
  Sex: Male

DRUGS (4)
  1. VOLTAREN RESINAT 20 KAP [Suspect]
     Indication: OSTEOARTHRITIS
     Dosage: 75 MG, QW2
  2. VOLTAREN RESINAT 20 KAP [Suspect]
     Dosage: 75 MG, BID
  3. ROXITHRO-LICH [Concomitant]
     Indication: INFECTION
     Dosage: UNK UKN, UNK
  4. LYRICA [Concomitant]
     Dosage: UNK UKN, UNK

REACTIONS (1)
  - Gastrointestinal fungal infection [Unknown]
